FAERS Safety Report 21493600 (Version 1)
Quarter: 2022Q4

REPORT INFORMATION
  Report Type: Report from Study
  Country: US (occurrence: US)
  Receive Date: 20221021
  Receipt Date: 20221021
  Transmission Date: 20230113
  Serious: No
  Sender: FDA-Public Use
  Company Number: US-ABBVIE-4161882

PATIENT
  Sex: Male

DRUGS (3)
  1. SKYRIZI [Suspect]
     Active Substance: RISANKIZUMAB-RZAA
     Indication: Psoriasis
     Dosage: WEEK 0?ONE IN ONCE
     Route: 058
     Dates: start: 20220429, end: 20220429
  2. SKYRIZI [Suspect]
     Active Substance: RISANKIZUMAB-RZAA
     Dosage: WEEK 4?ONE IN ONCE
     Route: 058
     Dates: start: 202205, end: 202205
  3. SKYRIZI [Suspect]
     Active Substance: RISANKIZUMAB-RZAA
     Dosage: EVERY 12 WEEKS?STRENGTH 150 MG
     Route: 058
     Dates: start: 2022

REACTIONS (7)
  - Pain of skin [Unknown]
  - Spondylitis [Unknown]
  - Psoriasis [Unknown]
  - Fine motor skill dysfunction [Unknown]
  - Loss of personal independence in daily activities [Unknown]
  - Exostosis [Unknown]
  - Arthralgia [Unknown]

NARRATIVE: CASE EVENT DATE: 20220101
